FAERS Safety Report 23265485 (Version 1)
Quarter: 2023Q4

REPORT INFORMATION
  Report Type: Spontaneous
  Country: US (occurrence: US)
  Receive Date: 20231206
  Receipt Date: 20231206
  Transmission Date: 20240110
  Serious: Yes (Hospitalization)
  Sender: FDA-Public Use
  Company Number: US-STERISCIENCE B.V.-2023-ST-001968

PATIENT
  Age: 60 Year
  Sex: Female
  Weight: 38 kg

DRUGS (5)
  1. BUPIVACAINE [Suspect]
     Active Substance: BUPIVACAINE
     Indication: Local anaesthesia
     Dosage: 60 MILLILITER, 60ML OF 0.25% (150MG) OF PLAIN BUPIVACAINE [BUPIVACAINE HYDROCHLORIDE] ADMIXED IN THE
     Route: 065
  2. MIDAZOLAM [Suspect]
     Active Substance: MIDAZOLAM
     Indication: Local anaesthetic systemic toxicity
     Dosage: UNK
     Route: 065
  3. EXPAREL [Suspect]
     Active Substance: BUPIVACAINE
     Indication: Local anaesthesia
     Dosage: 20 MILLILITER, LIPOSOMAL, 60ML OF 0.25% (150MG) OF PLAIN BUPIVACAINE [BUPIVACAINE HYDROCHLORIDE] ADM
     Route: 065
  4. SODIUM CHLORIDE [Concomitant]
     Active Substance: SODIUM CHLORIDE
     Indication: Vehicle solution use
     Dosage: 100 MILLILITER, 60ML OF 0.25% (150MG) OF PLAIN BUPIVACAINE [BUPIVACAINE HYDROCHLORIDE] ADMIXED IN TH
     Route: 065
  5. LIDOCAINE [Concomitant]
     Active Substance: LIDOCAINE
     Indication: Induction of anaesthesia
     Dosage: 50 MILLIGRAM
     Route: 042

REACTIONS (2)
  - Local anaesthetic systemic toxicity [None]
  - Off label use [Unknown]
